FAERS Safety Report 5881526-0 (Version None)
Quarter: 2008Q3

REPORT INFORMATION
  Report Type: 
  Country: None (occurrence: None)
  Receive Date: 20080911
  Receipt Date: 20080908
  Transmission Date: 20090109
  Serious: Yes (Other)
  Sender: FDA-Public Use
  Company Number: 033390

PATIENT
  Age: 90 Year
  Sex: Female

DRUGS (3)
  1. HYDROXYUREA [Suspect]
     Dosage: ORAL; 500 MG, BID, ORAL; ORAL
     Route: 048
     Dates: end: 20080401
  2. HYDROXYUREA [Suspect]
     Dosage: ORAL; 500 MG, BID, ORAL; ORAL
     Route: 048
     Dates: start: 20080401, end: 20080601
  3. HYDROXYUREA [Suspect]
     Dosage: ORAL; 500 MG, BID, ORAL; ORAL
     Route: 048
     Dates: start: 20080601

REACTIONS (2)
  - GRANULOCYTOPENIA [None]
  - LEUKOPENIA [None]
